FAERS Safety Report 21626890 (Version 1)
Quarter: 2022Q4

REPORT INFORMATION
  Report Type: Spontaneous
  Country: US (occurrence: None)
  Receive Date: 20221122
  Receipt Date: 20221122
  Transmission Date: 20230112
  Serious: No
  Sender: FDA-Public Use
  Company Number: US-ROCHE-3155087

PATIENT
  Age: 41 Year
  Sex: Female
  Weight: 40.8 kg

DRUGS (10)
  1. EVRYSDI [Suspect]
     Active Substance: RISDIPLAM
     Indication: Spinal muscular atrophy
     Route: 048
     Dates: start: 202011, end: 202207
  2. XOPENEX [Concomitant]
     Active Substance: LEVALBUTEROL HYDROCHLORIDE
     Dosage: 1.25MG NEB EVERY 4HRS
  3. LEXAPRO [Concomitant]
     Active Substance: ESCITALOPRAM OXALATE
     Dosage: 20MG BY MOUTH DAILY
  4. REMICADE [Concomitant]
     Active Substance: INFLIXIMAB
     Dosage: REMICADE IV
  5. PREDNISONE [Concomitant]
     Active Substance: PREDNISONE
     Dosage: 10MG BY MOUTH DAILY
  6. ACETYLCYSTEINE [Concomitant]
     Active Substance: ACETYLCYSTEINE
     Dosage: 0.5MG BY MOUTH EVERY 4HRS PR
  7. METHOTREXATE [Concomitant]
     Active Substance: METHOTREXATE
     Dosage: 10MG BY MOUTH EVERY 7DAYS
  8. REGLAN [Concomitant]
     Active Substance: METOCLOPRAMIDE HYDROCHLORIDE
     Dosage: 10MG BY MOUTH EVERY 4HRS
  9. MUCOMYST [Concomitant]
     Active Substance: ACETYLCYSTEINE
     Dosage: 20% NEB SOLUTION EVERY 4HRS
  10. MESTINON [Concomitant]
     Active Substance: PYRIDOSTIGMINE BROMIDE
     Dosage: 60MG EVERY MORNING, EVERY EVENING

REACTIONS (3)
  - Hepatic enzyme increased [Unknown]
  - Gastrointestinal inflammation [Unknown]
  - Lipase increased [Recovered/Resolved]

NARRATIVE: CASE EVENT DATE: 20220426
